FAERS Safety Report 9718092 (Version 1)
Quarter: 2013Q4

REPORT INFORMATION
  Report Type: Spontaneous
  Country: US (occurrence: US)
  Receive Date: 20131125
  Receipt Date: 20131125
  Transmission Date: 20140711
  Serious: No
  Sender: FDA-Public Use
  Company Number: US-VIVUS-2013V1000184

PATIENT
  Sex: Female
  Weight: 142.47 kg

DRUGS (2)
  1. QSYMIA 3.75MG/23MG [Suspect]
     Indication: WEIGHT DECREASED
     Route: 048
     Dates: start: 201302, end: 201303
  2. QSYMIA 7.5MG/46MG [Suspect]
     Indication: WEIGHT DECREASED
     Route: 048
     Dates: start: 201302, end: 201303

REACTIONS (10)
  - Euphoric mood [Recovered/Resolved]
  - Vision blurred [Recovered/Resolved]
  - Mood altered [Recovered/Resolved]
  - Impatience [Recovered/Resolved]
  - Skin discolouration [Recovered/Resolved]
  - Logorrhoea [Recovered/Resolved]
  - Disturbance in attention [Recovered/Resolved]
  - Irritability [Recovered/Resolved]
  - Headache [Recovered/Resolved]
  - Memory impairment [Recovered/Resolved]
